FAERS Safety Report 5385231-9 (Version None)
Quarter: 2007Q3

REPORT INFORMATION
  Report Type: 
  Country: None (occurrence: None)
  Receive Date: 20070712
  Receipt Date: 20070706
  Transmission Date: 20080115
  Serious: Yes (Hospitalization)
  Sender: FDA-Public Use
  Company Number: DE-AMGEN-US222667

PATIENT
  Sex: Male

DRUGS (1)
  1. ENBREL [Suspect]
     Indication: RHEUMATOID ARTHRITIS
     Dosage: UNKNOWN
     Route: 058
     Dates: end: 20070317

REACTIONS (3)
  - DYSPLASTIC NAEVUS SYNDROME [None]
  - MALIGNANT MELANOMA IN SITU [None]
  - SUPERFICIAL SPREADING MELANOMA STAGE I [None]
